FAERS Safety Report 8403132-6 (Version None)
Quarter: 2012Q2

REPORT INFORMATION
  Report Type: 
  Country: None (occurrence: None)
  Receive Date: 20120601
  Receipt Date: 20120525
  Transmission Date: 20120825
  Serious: Yes (Other)
  Sender: FDA-Public Use
  Company Number: US-JNJFOC-20120405176

PATIENT
  Sex: Female
  Weight: 95.71 kg

DRUGS (1)
  1. SIMPONI [Suspect]
     Indication: RHEUMATOID ARTHRITIS
     Route: 058
     Dates: start: 20120405, end: 20120405

REACTIONS (2)
  - CARDIAC FAILURE CONGESTIVE [None]
  - PULMONARY CONGESTION [None]
